FAERS Safety Report 8337455-6 (Version None)
Quarter: 2012Q2

REPORT INFORMATION
  Report Type: 
  Country: None (occurrence: None)
  Receive Date: 20120504
  Receipt Date: 20120504
  Transmission Date: 20120825
  Serious: Yes (Hospitalization)
  Sender: FDA-Public Use
  Company Number: US-PFIZER INC-2012097011

PATIENT
  Sex: Female
  Weight: 107.94 kg

DRUGS (3)
  1. VITAMIN D [Concomitant]
     Dosage: UNK, WEEKLY
  2. TRAMADOL [Concomitant]
     Indication: PAIN
     Dosage: 50MG THREE TIMES A DAY AS NEEDED
     Route: 048
  3. LYRICA [Suspect]
     Indication: FIBROMYALGIA
     Dosage: 100 MG, 3X/DAY
     Route: 048

REACTIONS (6)
  - LOSS OF CONSCIOUSNESS [None]
  - BODY HEIGHT DECREASED [None]
  - ANAEMIA [None]
  - FALL [None]
  - HEAD INJURY [None]
  - WEIGHT DECREASED [None]
